FAERS Safety Report 8124227-0 (Version None)
Quarter: 2012Q1

REPORT INFORMATION
  Report Type: 
  Country: None (occurrence: None)
  Receive Date: 20120209
  Receipt Date: 20120130
  Transmission Date: 20120608
  Serious: Yes (Hospitalization)
  Sender: FDA-Public Use
  Company Number: US-BAYER-2011-046344

PATIENT
  Age: 37 Year
  Sex: Female
  Weight: 120 kg

DRUGS (12)
  1. YAZ [Suspect]
     Indication: MENSTRUAL DISORDER
     Dosage: UNK
     Dates: start: 20070101, end: 20090101
  2. YASMIN [Suspect]
     Indication: MENSTRUAL DISORDER
     Dosage: UNK
     Dates: start: 20050101, end: 20050101
  3. LISINOPRIL [Concomitant]
     Dosage: UNK
     Route: 048
     Dates: start: 20080312, end: 20100503
  4. ZITHROMAX [Concomitant]
     Dosage: UNK
     Route: 048
     Dates: start: 20050725, end: 20101020
  5. PROMETHAZINE [Concomitant]
     Indication: MIGRAINE
     Dosage: UNK
     Route: 048
     Dates: start: 20080324
  6. DIURETICS [Concomitant]
     Dosage: UNK
     Route: 048
     Dates: start: 20070508
  7. YAZ [Suspect]
     Indication: MENORRHAGIA
  8. MOTRIN [Concomitant]
     Dosage: UNK
     Route: 048
     Dates: start: 19930101, end: 20110101
  9. PROTONIX [Concomitant]
     Route: 048
  10. YASMIN [Suspect]
     Indication: MENORRHAGIA
  11. CILOSTAZOL [Concomitant]
     Route: 048
  12. ALBUTEROL [Concomitant]
     Dosage: UNK
     Route: 048
     Dates: start: 20081007, end: 20100503

REACTIONS (7)
  - MENSTRUAL DISORDER [None]
  - PAIN [None]
  - ANHEDONIA [None]
  - ENDOMETRIAL HYPERTROPHY [None]
  - CHOLECYSTITIS [None]
  - EMOTIONAL DISTRESS [None]
  - ANXIETY [None]
